FAERS Safety Report 26102799 (Version 1)
Quarter: 2025Q4

REPORT INFORMATION
  Report Type: Spontaneous
  Country: GB (occurrence: GB)
  Receive Date: 20251128
  Receipt Date: 20251128
  Transmission Date: 20260117
  Serious: Yes (Other)
  Sender: PFIZER
  Company Number: None

PATIENT
  Age: 49 Year
  Weight: 55 kg

DRUGS (1)
  1. METHYLPREDNISOLONE [Suspect]
     Active Substance: METHYLPREDNISOLONE
     Dosage: 40 MG (SINGLE INJECTION)
     Dates: start: 20251110

REACTIONS (2)
  - Fall [Unknown]
  - Allergic reaction to excipient [Recovering/Resolving]

NARRATIVE: CASE EVENT DATE: 20251110
